FAERS Safety Report 6664364-0 (Version None)
Quarter: 2010Q2

REPORT INFORMATION
  Report Type: 
  Country: None (occurrence: None)
  Receive Date: 20100401
  Receipt Date: 20100325
  Transmission Date: 20101027
  Serious: Yes (Life-Threatening, Hospitalization)
  Sender: FDA-Public Use
  Company Number: GXKR2010DE03537

PATIENT
  Age: 16 Year
  Sex: Female

DRUGS (5)
  1. DOXEPIN HCL [Suspect]
     Route: 065
  2. MOCLOBEMIDE (NGX) [Interacting]
     Indication: DEPRESSION
     Dosage: 300 MG/DAY
     Route: 065
  3. METAMIZOLE [Concomitant]
     Route: 065
  4. DIPHENHYDRAMINE HYDROCHLORIDE [Concomitant]
     Route: 065
  5. WICK MEDINAIT [Concomitant]
     Route: 065

REACTIONS (17)
  - ANURIA [None]
  - BLOOD CREATINE PHOSPHOKINASE INCREASED [None]
  - COMA [None]
  - DRUG INTERACTION [None]
  - ENDOTRACHEAL INTUBATION [None]
  - GASTRIC LAVAGE [None]
  - HYPOTHERMIA [None]
  - HYPOTONIA [None]
  - LOSS OF CONSCIOUSNESS [None]
  - MECHANICAL VENTILATION [None]
  - MYDRIASIS [None]
  - PUPILLARY LIGHT REFLEX TESTS ABNORMAL [None]
  - PUPILS UNEQUAL [None]
  - RENAL FAILURE ACUTE [None]
  - RHABDOMYOLYSIS [None]
  - STRABISMUS [None]
  - SUICIDE ATTEMPT [None]
